FAERS Safety Report 8627851 (Version 2)
Quarter: 2012Q4

REPORT INFORMATION
  Report Type: 
  Country: ES (occurrence: ES)
  Receive Date: 20120621
  Receipt Date: 20121205
  Transmission Date: 20130627
  Serious: Yes (Hospitalization)
  Sender: FDA-Public Use
  Company Number: ES-ELI_LILLY_AND_COMPANY-ES201206004484

PATIENT
  Sex: Female
  Weight: 58 kg

DRUGS (4)
  1. FORSTEO [Suspect]
     Indication: OSTEOPOROSIS
     Dosage: 20 u, qd
     Route: 058
     Dates: start: 20101201
  2. FORSTEO [Suspect]
     Dosage: 20 u, qd
     Route: 058
     Dates: start: 20101201
  3. HIDROFEROL [Concomitant]
     Indication: OSTEOPOROSIS
     Dosage: 1.5 mg, monthly (1/M)
     Route: 048
  4. FLUOXETINE [Concomitant]
     Indication: DEPRESSION
     Dosage: 20 mg, qd
     Route: 048

REACTIONS (3)
  - Abdominal strangulated hernia [Unknown]
  - Inguinal hernia [Recovered/Resolved]
  - Inguinal hernia [Not Recovered/Not Resolved]
